FAERS Safety Report 24524116 (Version 2)
Quarter: 2024Q4

REPORT INFORMATION
  Report Type: Spontaneous
  Country: US (occurrence: US)
  Receive Date: 20241018
  Receipt Date: 20241218
  Transmission Date: 20250114
  Serious: No
  Sender: SANOFI AVENTIS
  Company Number: US-SA-2024SA296190

PATIENT
  Age: 40 Year
  Sex: Male

DRUGS (1)
  1. DUPIXENT [Suspect]
     Active Substance: DUPILUMAB
     Indication: Eosinophilic oesophagitis
     Dosage: 300 MG, QW
     Route: 058
     Dates: start: 20240817

REACTIONS (7)
  - Injection site pain [Unknown]
  - Migraine [Unknown]
  - Arthralgia [Recovering/Resolving]
  - Oral herpes [Unknown]
  - Injection site erythema [Recovered/Resolved]
  - Injection site haemorrhage [Recovered/Resolved]
  - Inappropriate schedule of product administration [Unknown]

NARRATIVE: CASE EVENT DATE: 20240101
